FAERS Safety Report 5117188-X (Version None)
Quarter: 2006Q3

REPORT INFORMATION
  Report Type: 
  Country: None (occurrence: None)
  Receive Date: 20060926
  Receipt Date: 20060913
  Transmission Date: 20061208
  Serious: Yes (Hospitalization, Other)
  Sender: FDA-Public Use
  Company Number: 2006111066

PATIENT
  Age: 67 Year
  Sex: Male
  Weight: 32.4322 kg

DRUGS (8)
  1. DILANTIN [Suspect]
     Indication: CONVULSION
  2. CIPROFLOXACIN [Suspect]
     Indication: CYSTITIS
  3. BUSPAR [Concomitant]
  4. REGLAN [Concomitant]
  5. ACETAMINOPHEN [Concomitant]
  6. ZANTAC [Concomitant]
  7. DRUG, UNSPECIFIED (DRUG, UNSPECIFIED) [Concomitant]
  8. NAVANE [Concomitant]

REACTIONS (14)
  - ANTICONVULSANT DRUG LEVEL INCREASED [None]
  - CEREBROVASCULAR ACCIDENT [None]
  - CONSTIPATION [None]
  - COUGH [None]
  - CYSTITIS [None]
  - DYSPHAGIA [None]
  - ERYTHEMA [None]
  - GRAND MAL CONVULSION [None]
  - HERNIA REPAIR [None]
  - MENTAL IMPAIRMENT [None]
  - OBSTRUCTIVE AIRWAYS DISORDER [None]
  - PNEUMONIA ASPIRATION [None]
  - RENAL FAILURE [None]
  - VOCAL CORD DISORDER [None]
